FAERS Safety Report 25096902 (Version 2)
Quarter: 2025Q1

REPORT INFORMATION
  Report Type: Spontaneous
  Country: US (occurrence: US)
  Receive Date: 20250319
  Receipt Date: 20250326
  Transmission Date: 20250409
  Serious: Yes (Hospitalization)
  Sender: PURDUE
  Company Number: US-PURDUE PHARMA-USA-2025-0316128

PATIENT
  Sex: Female
  Weight: 58.06 kg

DRUGS (11)
  1. BUPRENORPHINE [Suspect]
     Active Substance: BUPRENORPHINE
     Indication: Pain management
     Dosage: 20 MICROGRAM, WEEKLY (STRENGTH 20 MCG/HR)
     Route: 062
  2. METOPROLOL [Concomitant]
     Active Substance: METOPROLOL
     Indication: Cardiac disorder
     Route: 065
  3. DULOXETINE [Concomitant]
     Active Substance: DULOXETINE
     Indication: Anxiety
     Route: 065
  4. ATORVASTATIN [Concomitant]
     Active Substance: ATORVASTATIN
     Indication: Hypercholesterolaemia
     Route: 065
  5. GABAPENTIN [Concomitant]
     Active Substance: GABAPENTIN
     Indication: Neuropathy peripheral
     Route: 065
  6. BUPROPION [Concomitant]
     Active Substance: BUPROPION
     Indication: Depression
     Route: 065
  7. BUPROPION [Concomitant]
     Active Substance: BUPROPION
     Indication: Anxiety
  8. PILOCARPINE [Concomitant]
     Active Substance: PILOCARPINE
     Indication: Sjogren^s syndrome
     Route: 065
  9. ELIQUIS [Concomitant]
     Active Substance: APIXABAN
     Indication: Anticoagulant therapy
     Route: 065
  10. IBANDRONATE SODIUM [Concomitant]
     Active Substance: IBANDRONATE SODIUM
     Indication: Osteoporosis
     Route: 065
  11. ALBUTEROL [Concomitant]
     Active Substance: ALBUTEROL
     Indication: Dyspnoea
     Route: 065

REACTIONS (6)
  - Head injury [Unknown]
  - Fall [Unknown]
  - Drug withdrawal syndrome [Unknown]
  - Application site pruritus [Unknown]
  - Application site erythema [Unknown]
  - Product availability issue [Unknown]
